FAERS Safety Report 23327277 (Version 3)
Quarter: 2023Q4

REPORT INFORMATION
  Report Type: Spontaneous
  Country: US (occurrence: US)
  Receive Date: 20231221
  Receipt Date: 20231229
  Transmission Date: 20240110
  Serious: Yes (Death, Hospitalization)
  Sender: FDA-Public Use
  Company Number: US-ADC THERAPEUTICS SA-ADC-2023-000686

PATIENT
  Age: 40 Year
  Sex: Male

DRUGS (1)
  1. ZYNLONTA [Suspect]
     Active Substance: LONCASTUXIMAB TESIRINE-LPYL
     Indication: Diffuse large B-cell lymphoma
     Dosage: 0.15 MG/KG
     Route: 042

REACTIONS (4)
  - Death [Fatal]
  - Small intestinal obstruction [Not Recovered/Not Resolved]
  - Oedema peripheral [Unknown]
  - Rash [Unknown]
